FAERS Safety Report 4430843-X (Version None)
Quarter: 2004Q3

REPORT INFORMATION
  Report Type: 
  Country: None (occurrence: None)
  Receive Date: 20040823
  Receipt Date: 20040414
  Transmission Date: 20050211
  Serious: Yes (Death, Hospitalization)
  Sender: FDA-Public Use
  Company Number: CA-GLAXOSMITHKLINE-A0507227A

PATIENT
  Age: 62 Year
  Sex: Female
  Weight: 79.5 kg

DRUGS (2)
  1. TOPOTECAN [Suspect]
     Indication: SQUAMOUS CELL CARCINOMA OF THE CERVIX
     Dosage: 1MGM2 CYCLIC
     Route: 042
     Dates: start: 20040402, end: 20040404
  2. CISPLATIN [Suspect]
     Indication: SQUAMOUS CELL CARCINOMA OF THE CERVIX
     Dosage: 50MGM2 CYCLIC
     Route: 042
     Dates: start: 20040402, end: 20040402

REACTIONS (10)
  - CONFUSIONAL STATE [None]
  - DYSTONIA [None]
  - FEBRILE NEUTROPENIA [None]
  - GASTROINTESTINAL HAEMORRHAGE [None]
  - HAEMATEMESIS [None]
  - MALIGNANT NEOPLASM PROGRESSION [None]
  - NAUSEA [None]
  - THROMBOCYTOPENIA [None]
  - URINARY BLADDER HAEMORRHAGE [None]
  - VOMITING [None]
